FAERS Safety Report 15037664 (Version 1)
Quarter: 2018Q2

REPORT INFORMATION
  Report Type: Report from Study
  Country: US (occurrence: US)
  Receive Date: 20180620
  Receipt Date: 20180620
  Transmission Date: 20180711
  Serious: Yes (Other)
  Sender: FDA-Public Use
  Company Number: US-ASTRAZENECA-2016SF35160

PATIENT
  Sex: Female
  Weight: 62.6 kg

DRUGS (7)
  1. SEROQUEL XR [Suspect]
     Active Substance: QUETIAPINE FUMARATE
     Indication: MAJOR DEPRESSION
     Route: 048
     Dates: start: 20150115
  2. SEROQUEL XR [Suspect]
     Active Substance: QUETIAPINE FUMARATE
     Indication: MAJOR DEPRESSION
     Route: 048
  3. METOPROLOL. [Suspect]
     Active Substance: METOPROLOL
     Indication: BLOOD PRESSURE ABNORMAL
     Route: 048
  4. SEROQUEL XR [Suspect]
     Active Substance: QUETIAPINE FUMARATE
     Indication: MAJOR DEPRESSION
     Route: 048
  5. SEROQUEL XR [Suspect]
     Active Substance: QUETIAPINE FUMARATE
     Indication: MAJOR DEPRESSION
     Dosage: GENERIC SEROQUEL
     Route: 048
  6. MULTIVITAMIN [Concomitant]
     Active Substance: VITAMINS
  7. SEROQUEL XR [Suspect]
     Active Substance: QUETIAPINE FUMARATE
     Indication: MAJOR DEPRESSION
     Route: 048
     Dates: start: 2016

REACTIONS (14)
  - Gastric disorder [Unknown]
  - Asthenia [Unknown]
  - Insomnia [Unknown]
  - Drug dose omission [Unknown]
  - Perforated ulcer [Unknown]
  - Hepatic steatosis [Unknown]
  - Product use issue [Unknown]
  - Insurance issue [Unknown]
  - Feeling abnormal [Unknown]
  - Intentional product misuse [Unknown]
  - Off label use [Unknown]
  - Adenocarcinoma gastric [Unknown]
  - Abdominal distension [Unknown]
  - Polyp [Unknown]
